FAERS Safety Report 8716393 (Version 2)
Quarter: 2013Q4

REPORT INFORMATION
  Report Type: Spontaneous
  Country: US (occurrence: US)
  Receive Date: 20120810
  Receipt Date: 20131106
  Transmission Date: 20140711
  Serious: Yes (Other)
  Sender: FDA-Public Use
  Company Number: US-009507513-1207USA011552

PATIENT
  Age: 52 Year
  Sex: Female

DRUGS (3)
  1. VICTRELIS [Suspect]
  2. REBETOL [Suspect]
  3. PEGASYS [Suspect]

REACTIONS (4)
  - White blood cell count decreased [Unknown]
  - Dysgeusia [Unknown]
  - Diarrhoea [Unknown]
  - Anaemia [Unknown]
